FAERS Safety Report 22188807 (Version 2)
Quarter: 2023Q2

REPORT INFORMATION
  Report Type: Spontaneous
  Country: JP (occurrence: JP)
  Receive Date: 20230409
  Receipt Date: 20230623
  Transmission Date: 20230722
  Serious: Yes (Other)
  Sender: FDA-Public Use
  Company Number: JP-002147023-NVSJ2023JP004839

PATIENT
  Age: 66 Year
  Sex: Male
  Weight: 46.2 kg

DRUGS (4)
  1. ENTRESTO [Suspect]
     Active Substance: SACUBITRIL\VALSARTAN
     Indication: Cardiac failure chronic
     Dosage: 50 MG, BID
     Route: 048
     Dates: start: 20221120
  2. CARVEDILOL [Concomitant]
     Active Substance: CARVEDILOL
     Indication: Cardiac failure chronic
     Dosage: 5 MG, BID
     Route: 048
     Dates: start: 2016
  3. TORSEMIDE [Concomitant]
     Active Substance: TORSEMIDE
     Indication: Oedema due to cardiac disease
     Dosage: 2 MG, QD
     Route: 048
     Dates: start: 2016
  4. JARDIANCE [Concomitant]
     Active Substance: EMPAGLIFLOZIN
     Indication: Cardiac failure chronic
     Dosage: 10 MG, QD
     Route: 048
     Dates: start: 20221123

REACTIONS (3)
  - Polycythaemia [Recovering/Resolving]
  - Haemoglobin increased [Recovering/Resolving]
  - Red blood cell count increased [Recovered/Resolved]

NARRATIVE: CASE EVENT DATE: 20221122
